FAERS Safety Report 12782876 (Version 1)
Quarter: 2016Q3

REPORT INFORMATION
  Report Type: Spontaneous
  Country: GB (occurrence: GB)
  Receive Date: 20160927
  Receipt Date: 20160927
  Transmission Date: 20161109
  Serious: Yes (Hospitalization)
  Sender: FDA-Public Use
  Company Number: GB-ACCORD-044318

PATIENT
  Age: 68 Year
  Sex: Male

DRUGS (5)
  1. DICLOFENAC [Concomitant]
     Active Substance: DICLOFENAC
  2. LACTULOSE. [Concomitant]
     Active Substance: LACTULOSE
  3. AMITRIPTYLINE [Suspect]
     Active Substance: AMITRIPTYLINE
     Indication: PAIN IN EXTREMITY
     Dosage: 10 MG AT NIGHT INCREASING TO 30 MG AT NIGHT
     Route: 048
     Dates: start: 201608, end: 20160907
  4. CODEINE PHOSPHATE/PARACETAMOL [Concomitant]
  5. WARFARIN [Concomitant]
     Active Substance: WARFARIN

REACTIONS (2)
  - Myoclonus [Recovering/Resolving]
  - Off label use [Unknown]

NARRATIVE: CASE EVENT DATE: 20160908
